FAERS Safety Report 25463220 (Version 1)
Quarter: 2025Q2

REPORT INFORMATION
  Report Type: Spontaneous
  Country: JP (occurrence: JP)
  Receive Date: 20250620
  Receipt Date: 20250620
  Transmission Date: 20250717
  Serious: Yes (Life-Threatening)
  Sender: PFIZER
  Company Number: JP-PFIZER INC-PV202500072258

PATIENT
  Age: 75 Year
  Sex: Male

DRUGS (3)
  1. DEXMEDETOMIDINE HYDROCHLORIDE [Suspect]
     Active Substance: DEXMEDETOMIDINE HYDROCHLORIDE
     Indication: Sedation
  2. PROPOFOL [Concomitant]
     Active Substance: PROPOFOL
     Indication: Sedation
  3. FENTANYL [Concomitant]
     Active Substance: FENTANYL
     Indication: Sedation

REACTIONS (4)
  - Atrioventricular block [Recovering/Resolving]
  - Cardiac arrest [Recovering/Resolving]
  - Prinzmetal angina [Recovering/Resolving]
  - Arteriospasm coronary [Recovering/Resolving]
